FAERS Safety Report 8865458 (Version 1)
Quarter: 2012Q4

REPORT INFORMATION
  Report Type: 
  Country: US (occurrence: US)
  Receive Date: 20121024
  Receipt Date: 20121024
  Transmission Date: 20130627
  Serious: No
  Sender: FDA-Public Use
  Company Number: US-AMGEN-USASP2012003455

PATIENT
  Age: 58 Year
  Sex: Female
  Weight: 72.56 kg

DRUGS (4)
  1. ENBREL [Suspect]
     Indication: PRODUCT USED FOR UNKNOWN INDICATION
     Dosage: 50 mg, qwk
     Route: 058
  2. LEVOTHYROXIN [Concomitant]
     Dosage: 125 mug, UNK
  3. ASPIRIN [Concomitant]
     Dosage: 81 mg, UNK
  4. CALCIUM + VITAMIN D [Concomitant]
     Dosage: UNK

REACTIONS (2)
  - Knee operation [Unknown]
  - Injection site erythema [Unknown]
